FAERS Safety Report 5867638-6 (Version None)
Quarter: 2008Q3

REPORT INFORMATION
  Report Type: 
  Country: None (occurrence: None)
  Receive Date: 20080902
  Receipt Date: 20080826
  Transmission Date: 20090109
  Serious: Yes (Death, Life-Threatening, Other)
  Sender: FDA-Public Use
  Company Number: US-AVENTIS-200815625US

PATIENT
  Sex: Male

DRUGS (8)
  1. LOVENOX [Suspect]
     Dosage: DOSE: UNK
     Route: 058
  2. REMICADE [Suspect]
     Indication: COLITIS ULCERATIVE
     Route: 042
     Dates: start: 20011222, end: 20011222
  3. IMURAN                             /00001501/ [Suspect]
     Indication: COLITIS
     Route: 048
     Dates: start: 20011201
  4. IMURAN                             /00001501/ [Suspect]
     Route: 048
     Dates: start: 20021115
  5. ASACOL [Concomitant]
     Dosage: DOSE: UNK
  6. LOW MOLECULAR WEIGHT HEPARIN [Concomitant]
     Indication: ANTIPHOSPHOLIPID SYNDROME
     Dosage: DOSE: UNK
  7. LOW MOLECULAR WEIGHT HEPARIN [Concomitant]
     Indication: INFERIOR VENA CAVAL OCCLUSION
     Dosage: DOSE: UNK
  8. CORTICOSTEROIDS [Concomitant]
     Dosage: DOSE: UNK

REACTIONS (9)
  - ALANINE AMINOTRANSFERASE INCREASED [None]
  - ASPARTATE AMINOTRANSFERASE INCREASED [None]
  - BLOOD ALKALINE PHOSPHATASE INCREASED [None]
  - BLOOD LACTATE DEHYDROGENASE INCREASED [None]
  - DEATH [None]
  - GRAFT VERSUS HOST DISEASE [None]
  - HYPERTENSION [None]
  - PLATELET COUNT DECREASED [None]
  - T-CELL LYMPHOMA [None]
